FAERS Safety Report 7803344-6 (Version None)
Quarter: 2011Q4

REPORT INFORMATION
  Report Type: 
  Country: None (occurrence: None)
  Receive Date: 20111007
  Receipt Date: 20111003
  Transmission Date: 20120403
  Serious: Yes (Life-Threatening, Hospitalization)
  Sender: FDA-Public Use
  Company Number: PHFR2011GB05713

PATIENT
  Age: 52 Year
  Sex: Female

DRUGS (10)
  1. BISOPROLOL [Concomitant]
  2. ZOLEDRONIC ACID [Suspect]
     Indication: OSTEOPOROSIS
     Dosage: 1 DF (FREQUENCY UNKNOWN)
     Route: 042
     Dates: start: 20110801
  3. ACETAMINOPHEN AND CODEINE PHOSPHATE [Concomitant]
  4. ALENDRONIC ACID [Concomitant]
  5. VITAMIN B NOS [Concomitant]
  6. AMITRIPTYLINE HCL [Concomitant]
  7. FLUOXETINE [Concomitant]
  8. RAMIPRIL [Concomitant]
  9. SIMVASTATIN [Concomitant]
  10. OMEPRAZOLE [Concomitant]

REACTIONS (8)
  - RENAL FAILURE ACUTE [None]
  - METABOLIC ACIDOSIS [None]
  - PH BODY FLUID INCREASED [None]
  - BLOOD CREATININE INCREASED [None]
  - BLOOD POTASSIUM INCREASED [None]
  - BLOOD UREA INCREASED [None]
  - BASE EXCESS ABNORMAL [None]
  - HYPERKALAEMIA [None]
